FAERS Safety Report 21620154 (Version 6)
Quarter: 2025Q3

REPORT INFORMATION
  Report Type: Report from Study
  Country: JP (occurrence: JP)
  Receive Date: 20221121
  Receipt Date: 20250916
  Transmission Date: 20251020
  Serious: Yes (Other)
  Sender: TAKEDA
  Company Number: JP-TAKEDA-2022TJP077554

PATIENT
  Age: 5 Year
  Sex: Male

DRUGS (43)
  1. VELAGLUCERASE ALFA [Suspect]
     Active Substance: VELAGLUCERASE ALFA
     Indication: Gaucher^s disease type II
     Dosage: 800 INTERNATIONAL UNIT, Q2WEEKS
     Dates: start: 20190730, end: 20190814
  2. VELAGLUCERASE ALFA [Suspect]
     Active Substance: VELAGLUCERASE ALFA
     Dosage: 800 INTERNATIONAL UNIT, Q4WEEKS
     Dates: start: 20190911, end: 20191206
  3. VELAGLUCERASE ALFA [Suspect]
     Active Substance: VELAGLUCERASE ALFA
     Dosage: 800 INTERNATIONAL UNIT, Q4WEEKS
     Dates: start: 20191224, end: 20200121
  4. VELAGLUCERASE ALFA [Suspect]
     Active Substance: VELAGLUCERASE ALFA
     Dosage: 800 INTERNATIONAL UNIT, Q8WEEKS
     Dates: start: 20200206, end: 20200407
  5. VELAGLUCERASE ALFA [Suspect]
     Active Substance: VELAGLUCERASE ALFA
     Dosage: 800 INTERNATIONAL UNIT, Q4WEEKS
     Dates: start: 20200717, end: 20200814
  6. VELAGLUCERASE ALFA [Suspect]
     Active Substance: VELAGLUCERASE ALFA
     Dates: start: 20200825, end: 20200825
  7. VELAGLUCERASE ALFA [Suspect]
     Active Substance: VELAGLUCERASE ALFA
     Dates: start: 20201023, end: 20210115
  8. VELAGLUCERASE ALFA [Suspect]
     Active Substance: VELAGLUCERASE ALFA
     Dosage: 800 INTERNATIONAL UNIT, Q2WEEKS
     Dates: start: 20210212, end: 20210706
  9. VELAGLUCERASE ALFA [Suspect]
     Active Substance: VELAGLUCERASE ALFA
     Dates: start: 20210726, end: 20210726
  10. VELAGLUCERASE ALFA [Suspect]
     Active Substance: VELAGLUCERASE ALFA
     Dosage: 800 INTERNATIONAL UNIT, Q2WEEKS
     Dates: start: 20210810, end: 20220531
  11. VELAGLUCERASE ALFA [Suspect]
     Active Substance: VELAGLUCERASE ALFA
     Dosage: 1200 INTERNATIONAL UNIT, Q2WEEKS
     Dates: start: 20220614, end: 20220628
  12. VELAGLUCERASE ALFA [Suspect]
     Active Substance: VELAGLUCERASE ALFA
     Dosage: 1600 INTERNATIONAL UNIT, Q2WEEKS
     Dates: start: 20250604
  13. CLARITHROMYCIN [Concomitant]
     Active Substance: CLARITHROMYCIN
     Indication: Prophylaxis
  14. CLARITHROMYCIN [Concomitant]
     Active Substance: CLARITHROMYCIN
     Indication: Prophylaxis
     Dates: start: 20210414, end: 20211017
  15. HERBALS [Concomitant]
     Active Substance: HERBALS
     Indication: Prophylaxis
  16. SODIUM FERROUS CITRATE [Concomitant]
     Active Substance: SODIUM FERROUS CITRATE
     Indication: Mineral supplementation
  17. SODIUM FERROUS CITRATE [Concomitant]
     Active Substance: SODIUM FERROUS CITRATE
     Indication: Mineral supplementation
     Dates: start: 20210414, end: 20220704
  18. BIOTIN [Concomitant]
     Active Substance: BIOTIN
     Indication: Prophylaxis
  19. LEVETIRACETAM [Concomitant]
     Active Substance: LEVETIRACETAM
     Indication: Gaucher^s disease type II
  20. TU-100 [Concomitant]
     Active Substance: ASIAN GINSENG\GINGER\ZANTHOXYLUM PIPERITUM FRUIT PULP
     Indication: Prophylaxis
     Dates: start: 20210215, end: 20220704
  21. POTASSIUM GLUCONATE [Concomitant]
     Active Substance: POTASSIUM GLUCONATE
     Indication: Prophylaxis
  22. LIORESAL [Concomitant]
     Active Substance: BACLOFEN
     Indication: Gaucher^s disease type II
  23. DANTRIUM [Concomitant]
     Active Substance: DANTROLENE SODIUM
     Indication: Gaucher^s disease type II
  24. DANTRIUM [Concomitant]
     Active Substance: DANTROLENE SODIUM
  25. DANTRIUM [Concomitant]
     Active Substance: DANTROLENE SODIUM
     Dates: start: 20210329, end: 20220704
  26. LEVOCARNITINE [Concomitant]
     Active Substance: LEVOCARNITINE
     Indication: Prophylaxis
  27. LEVOCARNITINE [Concomitant]
     Active Substance: LEVOCARNITINE
     Indication: Prophylaxis
     Dates: start: 20210414, end: 20220704
  28. LANSOPRAZOLE [Concomitant]
     Active Substance: LANSOPRAZOLE
     Indication: Prophylaxis
  29. LANSOPRAZOLE [Concomitant]
     Active Substance: LANSOPRAZOLE
     Dates: start: 20220323, end: 20220531
  30. PHENOBARBITAL [Concomitant]
     Active Substance: PHENOBARBITAL
     Indication: Gaucher^s disease type II
  31. PHENOBARBITAL [Concomitant]
     Active Substance: PHENOBARBITAL
     Dates: start: 20210901, end: 20220704
  32. CLONAZEPAM [Concomitant]
     Active Substance: CLONAZEPAM
     Indication: Gaucher^s disease type II
  33. CEFACLOR [Concomitant]
     Active Substance: CEFACLOR
     Indication: Prophylaxis
  34. CEFACLOR [Concomitant]
     Active Substance: CEFACLOR
     Indication: Prophylaxis
     Dates: start: 20210414, end: 20220704
  35. PRANLUKAST [Concomitant]
     Active Substance: PRANLUKAST
     Indication: Prophylaxis
  36. CARBOCYSTEINE [Concomitant]
     Active Substance: CARBOCYSTEINE
     Indication: Prophylaxis
  37. SCOPOLIA SPP. [Concomitant]
     Indication: Prophylaxis
  38. BENZALIN [Concomitant]
     Indication: Gaucher^s disease type II
  39. Uralyt u [Concomitant]
     Indication: Prophylaxis
  40. TIZANIDINE [Concomitant]
     Active Substance: TIZANIDINE
     Indication: Gaucher^s disease type II
  41. TIZANIDINE [Concomitant]
     Active Substance: TIZANIDINE
     Dates: start: 20220629, end: 20220704
  42. MIYA-BM [Concomitant]
     Active Substance: CLOSTRIDIUM BUTYRICUM SPORES STRAIN M-55
     Indication: Prophylaxis
  43. BOTOX [Concomitant]
     Active Substance: ONABOTULINUMTOXINA
     Indication: Torticollis

REACTIONS (5)
  - Hypothyroidism [Recovering/Resolving]
  - Gaucher^s disease type II [Unknown]
  - Drug specific antibody absent [Unknown]
  - Iron deficiency anaemia [Recovering/Resolving]
  - Drug ineffective [Unknown]

NARRATIVE: CASE EVENT DATE: 20210204
